FAERS Safety Report 9857535 (Version 2)
Quarter: 2014Q1

REPORT INFORMATION
  Report Type: Report from Study
  Country: BE (occurrence: BE)
  Receive Date: 20140131
  Receipt Date: 20140203
  Transmission Date: 20141002
  Serious: Yes (Death, Hospitalization, Other)
  Sender: FDA-Public Use
  Company Number: PHHY2014BE009941

PATIENT
  Age: 52 Year
  Sex: Female
  Weight: 60 kg

DRUGS (2)
  1. CGP 57148B [Suspect]
     Indication: GRAFT VERSUS HOST DISEASE
     Dosage: 400 MG, UNK
     Dates: start: 200911
  2. CGP 57148B [Suspect]
     Indication: OFF LABEL USE
     Dosage: 400 MG, UNK
     Dates: start: 20140106

REACTIONS (6)
  - Bone marrow disorder [Fatal]
  - Chloroma [Fatal]
  - Leukaemia recurrent [Fatal]
  - Acute myeloid leukaemia [Fatal]
  - Febrile neutropenia [Unknown]
  - Pancytopenia [Unknown]
